FAERS Safety Report 4424334-X (Version None)
Quarter: 2004Q3

REPORT INFORMATION
  Report Type: 
  Country: None (occurrence: None)
  Receive Date: 20040806
  Receipt Date: 20040806
  Transmission Date: 20050211
  Serious: Yes (Life-Threatening, Hospitalization)
  Sender: FDA-Public Use
  Company Number: None

PATIENT
  Age: 50 Year
  Sex: Female
  Weight: 72 kg

DRUGS (2)
  1. CEFEPIME  2G  BRISTOL-MYERS SQUIBB [Suspect]
     Indication: CELLULITIS
     Dosage: 2 GRAMS  Q12HOURS INTRAVENOUS
     Route: 042
     Dates: start: 20040723, end: 20040729
  2. CEFEPIME  2G  BRISTOL-MYERS SQUIBB [Suspect]
     Indication: PSEUDOMONAS INFECTION
     Dosage: 2 GRAMS  Q12HOURS INTRAVENOUS
     Route: 042
     Dates: start: 20040723, end: 20040729

REACTIONS (5)
  - AGITATION [None]
  - COMA [None]
  - DRUG TOXICITY [None]
  - ELECTROENCEPHALOGRAM ABNORMAL [None]
  - STATUS EPILEPTICUS [None]
